FAERS Safety Report 11615915 (Version 2)
Quarter: 2016Q1

REPORT INFORMATION
  Report Type: Spontaneous
  Country: CA (occurrence: CA)
  Receive Date: 20151009
  Receipt Date: 20160208
  Transmission Date: 20160525
  Serious: Yes (Other)
  Sender: FDA-Public Use
  Company Number: CA-FERRINGPH-2015FE03453

PATIENT

DRUGS (15)
  1. FIRMAGON [Suspect]
     Active Substance: DEGARELIX ACETATE
     Dosage: 80 MG, ONCE/SINGLE
     Route: 058
     Dates: start: 20150423, end: 20150423
  2. RATIO-EMTEC [Concomitant]
     Dosage: 1 DF, 4 TIMES DAILY
     Dates: start: 20150407
  3. AZOPT [Concomitant]
     Active Substance: BRINZOLAMIDE
     Dosage: 1 DROP/EYE, 2 TIMES DAILY
     Dates: start: 20141007
  4. JAMP VITAMIN B12 [Concomitant]
     Dosage: 1 DF, 1 TIME DAILY, IN THE MORNING
     Dates: start: 20141003
  5. CLOTRIMADERM [Concomitant]
     Dosage: AS NEEDED, 2 TIMES DAILY, LOCAL APPLICATION IN THIN LAYER ON THE PENIS FOR 10 DAYS
     Dates: start: 20150417
  6. PANTOPRAZOLE [Concomitant]
     Active Substance: PANTOPRAZOLE SODIUM
     Dosage: 1 DF, 1 TIME DAILY, 30 MIN BEFORE LUNCH
     Dates: start: 20141003
  7. NITROLINGUAL [Concomitant]
     Active Substance: NITROGLYCERIN
     Dosage: 1 VAPORISATION UNDER THE TONGUE/AS NEEDED (MAX 3)
     Route: 060
     Dates: start: 20141016
  8. TAMSULOSIN [Concomitant]
     Active Substance: TAMSULOSIN
     Dosage: 1 DF, 1 TIME DAILY, IN THE MORNING
     Dates: start: 20141003
  9. D-TABS [Concomitant]
     Active Substance: CHOLECALCIFEROL
     Dosage: 1 DF, WEEKLY
     Dates: start: 20141003
  10. ASA [Concomitant]
     Active Substance: ASPIRIN
     Dosage: 1 DF, 1 TIME DAILY, IN THE MORNING
     Dates: start: 20141003
  11. MIRTAZAPINE. [Concomitant]
     Active Substance: MIRTAZAPINE
     Dosage: 1 DF, 1 TIME DAILY, AT BEDTIME
     Dates: start: 20141003
  12. PMS FINASTERIDE [Concomitant]
     Dosage: 1 DF, 1 TIME DAILY, IN THE MORNING
     Dates: start: 20141003
  13. RAMIPRIL. [Concomitant]
     Active Substance: RAMIPRIL
     Indication: BLOOD PRESSURE MANAGEMENT
     Dosage: 1 DF, 1 TIME DAILY, IN THE MORNING
     Dates: start: 20141003
  14. FIRMAGON [Suspect]
     Active Substance: DEGARELIX ACETATE
     Indication: PROSTATE CANCER
     Dosage: 240 MG ONCE
     Route: 058
     Dates: start: 20150323, end: 20150323
  15. LATANOPROST + TIMOLOL SANDOZ [Concomitant]
     Dosage: 1 DROP/EYE, 1 TIME DAILY, AT NIGHT
     Dates: start: 20141229

REACTIONS (3)
  - Agitation [Recovering/Resolving]
  - Aggression [Recovering/Resolving]
  - Hallucination [Recovering/Resolving]

NARRATIVE: CASE EVENT DATE: 201503
